FAERS Safety Report 17405557 (Version 1)
Quarter: 2020Q1

REPORT INFORMATION
  Report Type: Spontaneous
  Country: CA (occurrence: CA)
  Receive Date: 20200212
  Receipt Date: 20200212
  Transmission Date: 20200409
  Serious: Yes (Hospitalization)
  Sender: FDA-Public Use
  Company Number: CA-AUROBINDO-AUR-APL-2020-006529

PATIENT
  Sex: Female

DRUGS (6)
  1. TADALAFIL TABLET [Suspect]
     Active Substance: TADALAFIL
     Indication: HEART DISEASE CONGENITAL
  2. TADALAFIL. [Suspect]
     Active Substance: TADALAFIL
     Indication: PULMONARY ARTERIAL HYPERTENSION
  3. TADALAFIL TABLET [Suspect]
     Active Substance: TADALAFIL
     Indication: RIGHT-TO-LEFT CARDIAC SHUNT
     Dosage: UNK
     Route: 065
  4. TADALAFIL TABLET [Suspect]
     Active Substance: TADALAFIL
     Indication: PULMONARY ARTERIAL HYPERTENSION
     Dosage: UNK
     Route: 065
  5. TADALAFIL. [Suspect]
     Active Substance: TADALAFIL
     Indication: HEART DISEASE CONGENITAL
  6. TADALAFIL. [Suspect]
     Active Substance: TADALAFIL
     Indication: RIGHT-TO-LEFT CARDIAC SHUNT
     Dosage: 40 MILLIGRAM
     Route: 065

REACTIONS (4)
  - Gait disturbance [Not Recovered/Not Resolved]
  - Impaired healing [Not Recovered/Not Resolved]
  - Oxygen saturation decreased [Not Recovered/Not Resolved]
  - Wound [Not Recovered/Not Resolved]
